FAERS Safety Report 21398640 (Version 1)
Quarter: 2022Q3

REPORT INFORMATION
  Report Type: Other
  Country: CA (occurrence: None)
  Receive Date: 20220930
  Receipt Date: 20220930
  Transmission Date: 20221027
  Serious: Yes (Other)
  Sender: FDA-Public Use
  Company Number: CA-Square-000099

PATIENT
  Age: 13 Year
  Sex: Female

DRUGS (1)
  1. ACYCLOVIR [Suspect]
     Active Substance: ACYCLOVIR
     Indication: Herpes simplex
     Dosage: 10 MG/KG EVERY 8 HOURS
     Route: 042

REACTIONS (2)
  - Disease progression [Recovered/Resolved]
  - Retinitis [Recovered/Resolved]
